FAERS Safety Report 18510216 (Version 1)
Quarter: 2020Q4

REPORT INFORMATION
  Report Type: Spontaneous
  Country: US (occurrence: US)
  Receive Date: 20201114
  Receipt Date: 20201114
  Transmission Date: 20210114
  Serious: Yes (Death)
  Sender: FDA-Public Use
  Company Number: None

PATIENT
  Age: 70 Year
  Sex: Male

DRUGS (1)
  1. CHIMERIC ANTIGEN RECEPTOR (CAR) T CELL INFUSIONS [Suspect]
     Active Substance: INVESTIGATIONAL PRODUCT

REACTIONS (12)
  - Shock haemorrhagic [None]
  - Infusion related reaction [None]
  - Upper gastrointestinal haemorrhage [None]
  - Pyrexia [None]
  - Confusional state [None]
  - Agitation [None]
  - Delirium [None]
  - Refusal of treatment by patient [None]
  - Neurotoxicity [None]
  - Hypotension [None]
  - Speech disorder [None]
  - Disturbance in attention [None]
